FAERS Safety Report 7356281-8 (Version None)
Quarter: 2011Q1

REPORT INFORMATION
  Report Type: 
  Country: None (occurrence: None)
  Receive Date: 20110316
  Receipt Date: 20110120
  Transmission Date: 20110831
  Serious: Yes (Hospitalization, Other)
  Sender: FDA-Public Use
  Company Number: US-BAYER-2011-022977

PATIENT
  Sex: Female
  Weight: 61.224 kg

DRUGS (8)
  1. DOXYCYCLINE [Concomitant]
     Dosage: UNK
     Dates: start: 20080101
  2. YAZ [Suspect]
     Indication: CONTRACEPTION
     Dosage: UNK
     Dates: start: 20070601, end: 20090801
  3. IBUPROFEN [Concomitant]
  4. VALTREX [Concomitant]
     Dosage: UNK
     Dates: start: 20070101, end: 20100101
  5. HYDROCODONE BITARTRATE [Concomitant]
     Dosage: UNK
     Dates: start: 20080101
  6. ASCORBIC ACID [Concomitant]
     Dosage: UNK
  7. DICYCLOMINE [Concomitant]
     Dosage: UNK
     Dates: start: 20081101
  8. NEXIUM [Concomitant]
     Dosage: UNK
     Dates: start: 20081001

REACTIONS (7)
  - BILIARY DYSKINESIA [None]
  - CHOLECYSTITIS CHRONIC [None]
  - ABDOMINAL DISTENSION [None]
  - HEPATOBILIARY SCAN ABNORMAL [None]
  - NAUSEA [None]
  - ABDOMINAL PAIN UPPER [None]
  - BILIARY COLIC [None]
